FAERS Safety Report 24645730 (Version 1)
Quarter: 2024Q4

REPORT INFORMATION
  Report Type: Spontaneous
  Country: US (occurrence: US)
  Receive Date: 20241121
  Receipt Date: 20241121
  Transmission Date: 20250115
  Serious: No
  Sender: NOVARTIS
  Company Number: US-002147023-NVSC2024US223552

PATIENT
  Age: 68 Year
  Sex: Female

DRUGS (1)
  1. LEQVIO [Suspect]
     Active Substance: INCLISIRAN SODIUM
     Indication: Hyperlipidaemia
     Dosage: 284 MG (INITIAL DOSE, THEN 3 MONTHS, THEN EVERY 6 MONTHS THEREAFTER)
     Route: 058
     Dates: start: 20240806, end: 20241031

REACTIONS (2)
  - Rash [Unknown]
  - Injection site rash [Unknown]

NARRATIVE: CASE EVENT DATE: 20241031
